FAERS Safety Report 22229610 (Version 1)
Quarter: 2023Q2

REPORT INFORMATION
  Report Type: Spontaneous
  Country: US (occurrence: None)
  Receive Date: 20230418
  Receipt Date: 20230418
  Transmission Date: 20230722
  Serious: Yes (Disabling, Other)
  Sender: FDA-Public Use
  Company Number: None

PATIENT
  Age: 92 Year
  Sex: Female
  Weight: 56.25 kg

DRUGS (10)
  1. PAXLOVID [Suspect]
     Active Substance: NIRMATRELVIR\RITONAVIR
     Indication: SARS-CoV-2 test positive
     Dosage: FREQUENCY : TWICE A DAY;?
     Route: 048
     Dates: end: 20221028
  2. ATORVASTATIN [Concomitant]
     Active Substance: ATORVASTATIN
  3. HYDROXYZINE [Concomitant]
     Active Substance: HYDROXYZINE HYDROCHLORIDE
  4. TRAMADOL [Concomitant]
     Active Substance: TRAMADOL
  5. Cera-Ve cream [Concomitant]
  6. HYDROCORTISONE [Concomitant]
     Active Substance: HYDROCORTISONE
  7. ZYRTEC [Concomitant]
     Active Substance: CETIRIZINE HYDROCHLORIDE
  8. DIETARY SUPPLEMENT [Concomitant]
     Active Substance: DIETARY SUPPLEMENT
  9. Pure Essence Vitamin [Concomitant]
  10. OMEGA 3 [Concomitant]
     Active Substance: CAPSAICIN

REACTIONS (2)
  - Dermatitis [None]
  - Urticaria [None]

NARRATIVE: CASE EVENT DATE: 20211101
